FAERS Safety Report 16863096 (Version 1)
Quarter: 2019Q3

REPORT INFORMATION
  Report Type: Spontaneous
  Country: US (occurrence: US)
  Receive Date: 20190927
  Receipt Date: 20190927
  Transmission Date: 20191005
  Serious: Yes (Other)
  Sender: FDA-Public Use
  Company Number: US-MYLANLABS-2019M1089431

PATIENT
  Age: 34 Year
  Sex: Female
  Weight: 75 kg

DRUGS (3)
  1. FENTANYL. [Suspect]
     Active Substance: FENTANYL
     Indication: EPIDURAL ANALGESIA
     Dosage: 100 MICROGRAM
     Route: 008
  2. BUPIVACAINE. [Suspect]
     Active Substance: BUPIVACAINE
     Indication: PROPHYLAXIS
     Dosage: 20 MILLILITER;TOTAL OF 20 ML OF 0.25% BUPIVACAINE WAS INJECTED IN 5-ML INCREMENTS
     Route: 008
  3. BUPIVACAINE. [Suspect]
     Active Substance: BUPIVACAINE
     Indication: EPIDURAL ANALGESIA
     Dosage: 20 MILLILITER; BOLUS
     Route: 008

REACTIONS (3)
  - Maternal exposure during delivery [Recovered/Resolved]
  - Muscular weakness [Recovered/Resolved]
  - Horner^s syndrome [Recovered/Resolved]
